FAERS Safety Report 9096092 (Version 1)
Quarter: 2013Q1

REPORT INFORMATION
  Report Type: Spontaneous
  Country: US (occurrence: US)
  Receive Date: 20130207
  Receipt Date: 20130207
  Transmission Date: 20140127
  Serious: Yes (Other)
  Sender: FDA-Public Use
  Company Number: US-GILEAD-2013-0069350

PATIENT
  Age: 63 Year
  Sex: Male

DRUGS (8)
  1. LETAIRIS [Suspect]
     Indication: PULMONARY ARTERIAL HYPERTENSION
     Dosage: 5 MG, QD
     Route: 048
     Dates: start: 201210, end: 201301
  2. ADCIRCA [Concomitant]
     Dosage: 40 MG, QD
     Route: 048
  3. BACTRIM [Concomitant]
  4. LEVOTHYROID [Concomitant]
  5. INSULIN LISPRO [Concomitant]
  6. SPIRONOLACTONE [Concomitant]
  7. CARVEDILOL [Concomitant]
  8. BUMETANIDE [Concomitant]

REACTIONS (2)
  - Unevaluable event [Unknown]
  - Drug ineffective [Unknown]
